FAERS Safety Report 7318352-1 (Version None)
Quarter: 2011Q1

REPORT INFORMATION
  Report Type: 
  Country: None (occurrence: None)
  Receive Date: 20110217
  Receipt Date: 20110217
  Transmission Date: 20110831
  Serious: No
  Sender: FDA-Public Use
  Company Number: None

PATIENT
  Sex: Female
  Weight: 62.5964 kg

DRUGS (2)
  1. ENALAPRILAT [Suspect]
     Dosage: VASO
  2. SIMVASTATIN [Suspect]

REACTIONS (4)
  - MYALGIA [None]
  - ASTHENIA [None]
  - MOVEMENT DISORDER [None]
  - PAIN [None]
